FAERS Safety Report 5209180-1 (Version None)
Quarter: 2007Q1

REPORT INFORMATION
  Report Type: 
  Country: None (occurrence: None)
  Receive Date: 20070116
  Receipt Date: 20070105
  Transmission Date: 20070707
  Serious: Yes (Disabling)
  Sender: FDA-Public Use
  Company Number: 2006GB02319

PATIENT
  Age: 19344 Day
  Sex: Female
  Weight: 77 kg

DRUGS (2)
  1. CRESTOR [Suspect]
     Indication: HYPERLIPIDAEMIA
     Route: 048
     Dates: start: 20051107, end: 20061101
  2. ARAVA [Concomitant]
     Dates: start: 20030101

REACTIONS (1)
  - POLYARTHRITIS [None]
